FAERS Safety Report 14910392 (Version 5)
Quarter: 2018Q3

REPORT INFORMATION
  Report Type: Spontaneous
  Country: CN (occurrence: CN)
  Receive Date: 20180517
  Receipt Date: 20180810
  Transmission Date: 20181010
  Serious: Yes (Other)
  Sender: FDA-Public Use
  Company Number: CN-009507513-1805CHN006831

PATIENT
  Age: 84 Year
  Sex: Female

DRUGS (4)
  1. ACARBOSE. [Concomitant]
     Active Substance: ACARBOSE
     Dosage: 50 MG, TID
     Route: 048
  2. FOSAMAX [Suspect]
     Active Substance: ALENDRONATE SODIUM
     Indication: OSTEOPOROSIS
     Dosage: 70 MG/TABLET, PER WEEK ON AN EMPTY STOMACH IN THE MORNING
     Route: 048
     Dates: start: 201504, end: 201509
  3. ALPHA D3 [Concomitant]
     Active Substance: ALFACALCIDOL
     Dosage: ALFACALCIDOL 0.25 MICROGRAM/CAPSULE, 2 CAPULE (REPORTED AS TABLET) ONCE DAILY
     Route: 048
  4. CALTRATE WITH VITAMIN D [Concomitant]
     Active Substance: CALCIUM CARBONATE\CHOLECALCIFEROL
     Dosage: 1 TABLET ONCE DAILY
     Route: 048

REACTIONS (2)
  - Carcinoembryonic antigen increased [Recovered/Resolved]
  - Gastritis [Unknown]

NARRATIVE: CASE EVENT DATE: 2015
